FAERS Safety Report 5438461-1 (Version None)
Quarter: 2007Q3

REPORT INFORMATION
  Report Type: 
  Country: None (occurrence: None)
  Receive Date: 20070831
  Receipt Date: 20070822
  Transmission Date: 20080115
  Serious: Yes (Other)
  Sender: FDA-Public Use
  Company Number: US-ROCHE-494048

PATIENT
  Age: 18 Year
  Sex: Female
  Weight: 54.4 kg

DRUGS (5)
  1. ACCUTANE [Suspect]
     Dosage: DOSAGE REGIMEN WAS REPORTED AS: 40 MG-AM/20 MG-PM.
     Route: 048
     Dates: start: 19990914, end: 20000205
  2. ZITHROMAX [Concomitant]
     Dosage: REPORTED AS: AZITHROMYCIN/Z-PACK.
     Dates: start: 19991214
  3. DIFLUCAN [Concomitant]
     Dosage: INDICATIONS FOR USE REPORTED AS: VAGINITIS/CERVICITIS.
  4. LOTRIMIN [Concomitant]
     Dosage: DOSAGE REGIMEN REPORTED AS: BID; INDICATIONS FOR USE REPORTED AS: VAGINITIS/CERVICITIS.
     Route: 061
     Dates: start: 20000110
  5. ELOCON [Concomitant]
     Dosage: DOSAGE REGIMEN REPORTED AS: BID; INDICATIONS FOR USE REPORTED AS: VAGINITIS/CERVICITIS.
     Route: 061
     Dates: start: 20000110

REACTIONS (16)
  - CERVICAL DYSPLASIA [None]
  - CERVICITIS [None]
  - COLITIS [None]
  - COLITIS ULCERATIVE [None]
  - CROHN'S DISEASE [None]
  - DRY EYE [None]
  - DRY SKIN [None]
  - EMOTIONAL DISTRESS [None]
  - GASTRITIS [None]
  - HEADACHE [None]
  - ILEITIS [None]
  - INFLAMMATORY BOWEL DISEASE [None]
  - MIGRAINE [None]
  - PROCTITIS ULCERATIVE [None]
  - URINARY TRACT INFECTION [None]
  - VAGINAL INFECTION [None]
